FAERS Safety Report 19715340 (Version 1)
Quarter: 2021Q3

REPORT INFORMATION
  Report Type: Spontaneous
  Country: IN (occurrence: IN)
  Receive Date: 20210818
  Receipt Date: 20210818
  Transmission Date: 20211014
  Serious: Yes (Death)
  Sender: FDA-Public Use
  Company Number: IN-PFIZER INC-2019428320

PATIENT
  Age: 63 Year
  Sex: Female

DRUGS (2)
  1. PALBACE [Suspect]
     Active Substance: PALBOCICLIB
     Indication: BREAST CANCER METASTATIC
     Dosage: 125 MG, 1X/DAY
     Route: 048
     Dates: start: 20180423, end: 20201201
  2. FULVESTRANT. [Concomitant]
     Active Substance: FULVESTRANT
     Indication: BREAST CANCER METASTATIC
     Dosage: UNK

REACTIONS (2)
  - Pain [Unknown]
  - COVID-19 [Fatal]
